FAERS Safety Report 8200269-1 (Version None)
Quarter: 2012Q1

REPORT INFORMATION
  Report Type: 
  Country: None (occurrence: None)
  Receive Date: 20120312
  Receipt Date: 20120306
  Transmission Date: 20120608
  Serious: No
  Sender: FDA-Public Use
  Company Number: US-PFIZER INC-2012030821

PATIENT
  Sex: Female
  Weight: 68 kg

DRUGS (1)
  1. FLECTOR [Suspect]
     Indication: PAIN
     Dosage: UNK, 2X/DAY
     Route: 061
     Dates: start: 20120120, end: 20120202

REACTIONS (3)
  - INSOMNIA [None]
  - HEADACHE [None]
  - NAUSEA [None]
